FAERS Safety Report 11163642 (Version 1)
Quarter: 2015Q2

REPORT INFORMATION
  Report Type: Spontaneous
  Country: GB (occurrence: None)
  Receive Date: 20150602
  Receipt Date: 20150602
  Transmission Date: 20150821
  Serious: Yes (Hospitalization)
  Sender: FDA-Public Use
  Company Number: 2015JUB00152

PATIENT

DRUGS (1)
  1. OLANZAPINE LONG-ACTING IM [Suspect]
     Active Substance: OLANZAPINE PAMOATE
     Route: 030

REACTIONS (5)
  - Post-injection delirium sedation syndrome [None]
  - Respiratory distress [None]
  - Aspiration [None]
  - Incorrect route of drug administration [None]
  - Obstructive airways disorder [None]
